FAERS Safety Report 8455632-0 (Version None)
Quarter: 2012Q2

REPORT INFORMATION
  Report Type: 
  Country: None (occurrence: None)
  Receive Date: 20120621
  Receipt Date: 20120619
  Transmission Date: 20120825
  Serious: Yes (Hospitalization)
  Sender: FDA-Public Use
  Company Number: US-CELGENEUS-163-21880-12053311

PATIENT
  Sex: Male

DRUGS (1)
  1. REVLIMID [Suspect]
     Dosage: 10 MILLIGRAM
     Route: 048
     Dates: start: 20120501

REACTIONS (5)
  - HAEMOPTYSIS [None]
  - PLATELET COUNT DECREASED [None]
  - INSOMNIA [None]
  - MUSCLE SPASMS [None]
  - APHAGIA [None]
